FAERS Safety Report 19168453 (Version 1)
Quarter: 2021Q2

REPORT INFORMATION
  Report Type: Spontaneous
  Country: US (occurrence: US)
  Receive Date: 20210422
  Receipt Date: 20210422
  Transmission Date: 20210717
  Serious: No
  Sender: FDA-Public Use
  Company Number: US-DRREDDYS-USA/USA/21/0134451

PATIENT
  Sex: Male

DRUGS (2)
  1. FEXOFENADINE HCL 60 MG AND PSEUDOEPHEDRINE HCL ER 120 MG [Suspect]
     Active Substance: FEXOFENADINE HYDROCHLORIDE\PSEUDOEPHEDRINE HYDROCHLORIDE
     Indication: SNEEZING
     Dosage: 60 MG/120 MG
     Route: 048
  2. FEXOFENADINE HCL 60 MG AND PSEUDOEPHEDRINE HCL ER 120 MG [Suspect]
     Active Substance: FEXOFENADINE HYDROCHLORIDE\PSEUDOEPHEDRINE HYDROCHLORIDE
     Indication: COUGH
     Route: 048

REACTIONS (7)
  - Sneezing [Unknown]
  - Product quality issue [Unknown]
  - Reaction to excipient [Unknown]
  - Drug ineffective [Unknown]
  - Condition aggravated [Unknown]
  - Rash [Unknown]
  - Cough [Unknown]
